FAERS Safety Report 7991080-5 (Version None)
Quarter: 2011Q4

REPORT INFORMATION
  Report Type: 
  Country: None (occurrence: None)
  Receive Date: 20111219
  Receipt Date: 20111212
  Transmission Date: 20120403
  Serious: Yes (Other)
  Sender: FDA-Public Use
  Company Number: US-ROCHE-789898

PATIENT
  Sex: Male
  Weight: 93.07 kg

DRUGS (2)
  1. TETRACYCLINE [Concomitant]
  2. ACCUTANE [Suspect]
     Indication: ACNE
     Route: 065
     Dates: start: 19961001, end: 19980101

REACTIONS (10)
  - DEPRESSION [None]
  - OSTEOPOROSIS [None]
  - INFLAMMATORY BOWEL DISEASE [None]
  - ANAL FISSURE [None]
  - CROHN'S DISEASE [None]
  - ANAL ABSCESS [None]
  - COLITIS ULCERATIVE [None]
  - IRRITABLE BOWEL SYNDROME [None]
  - ANAL FISTULA [None]
  - INTESTINAL HAEMORRHAGE [None]
